FAERS Safety Report 25715534 (Version 5)
Quarter: 2025Q4

REPORT INFORMATION
  Report Type: Spontaneous
  Country: US (occurrence: US)
  Receive Date: 20250822
  Receipt Date: 20251118
  Transmission Date: 20260118
  Serious: No
  Sender: BRISTOL-MYERS SQUIBB COMPANY
  Company Number: US-BRISTOL-MYERS SQUIBB COMPANY-2025-117015

PATIENT
  Age: 80 Year
  Sex: Male

DRUGS (3)
  1. LENALIDOMIDE [Suspect]
     Active Substance: LENALIDOMIDE
     Indication: Anaemia vitamin B12 deficiency
     Route: 048
  2. LENALIDOMIDE [Suspect]
     Active Substance: LENALIDOMIDE
     Indication: Myelodysplastic syndrome
     Dosage: FREQUENCY: TAKE 1 CAPSULE BY MOUTH EVERY DAY ON MONDAY THROUGH FRIDAY FOR 3 WEEKS ON AND 1 WEEK OFF EVERY 28 DAYS
     Route: 048
  3. LENALIDOMIDE [Suspect]
     Active Substance: LENALIDOMIDE
     Route: 048

REACTIONS (5)
  - Malaise [Not Recovered/Not Resolved]
  - White blood cell count decreased [Recovering/Resolving]
  - Animal scratch [Recovering/Resolving]
  - Localised infection [Recovering/Resolving]
  - Sinusitis [Recovering/Resolving]

NARRATIVE: CASE EVENT DATE: 20250801
